FAERS Safety Report 26207550 (Version 1)
Quarter: 2025Q4

REPORT INFORMATION
  Report Type: Spontaneous
  Country: US (occurrence: None)
  Receive Date: 20251224
  Receipt Date: 20251224
  Transmission Date: 20260117
  Serious: Yes (Hospitalization)
  Sender: FDA-CTU
  Company Number: None

PATIENT
  Age: 33 Year
  Sex: Female
  Weight: 77 kg

DRUGS (2)
  1. ENCORAFENIB [Suspect]
     Active Substance: ENCORAFENIB
     Dosage: ORAL
     Route: 048
     Dates: start: 20250615, end: 20250720
  2. BINIMETINIB [Suspect]
     Active Substance: BINIMETINIB

REACTIONS (2)
  - Constipation [None]
  - Drug-induced liver injury [None]

NARRATIVE: CASE EVENT DATE: 20250720
